APPROVED DRUG PRODUCT: GLIMEPIRIDE
Active Ingredient: GLIMEPIRIDE
Strength: 4MG
Dosage Form/Route: TABLET;ORAL
Application: A202112 | Product #003 | TE Code: AB
Applicant: REGCON HOLDINGS LLC
Approved: Apr 17, 2013 | RLD: No | RS: No | Type: RX